FAERS Safety Report 6965597-6 (Version None)
Quarter: 2010Q3

REPORT INFORMATION
  Report Type: 
  Country: None (occurrence: None)
  Receive Date: 20100903
  Receipt Date: 20100827
  Transmission Date: 20110219
  Serious: Yes (Death)
  Sender: FDA-Public Use
  Company Number: BR-ROCHE-687356

PATIENT
  Sex: Female
  Weight: 37 kg

DRUGS (5)
  1. BEVACIZUMAB [Suspect]
     Route: 042
     Dates: start: 20091127, end: 20100210
  2. INTERFERON ALFA [Suspect]
     Indication: RENAL CANCER
     Dosage: DOSE: 6 UM THRICE WEEKLY
     Route: 058
     Dates: start: 20091127, end: 20100210
  3. OMEPRAZOLE [Concomitant]
     Indication: PROPHYLAXIS
     Dates: start: 20090801
  4. MORPHINE [Concomitant]
     Indication: CANCER PAIN
     Dates: start: 20091128
  5. LACTULON [Concomitant]
     Indication: CONSTIPATION PROPHYLAXIS
     Dates: start: 20091214

REACTIONS (1)
  - SEPSIS [None]
